FAERS Safety Report 8544412-3 (Version None)
Quarter: 2012Q3

REPORT INFORMATION
  Report Type: 
  Country: None (occurrence: None)
  Receive Date: 20120717
  Receipt Date: 20120705
  Transmission Date: 20120928
  Serious: Yes (Hospitalization)
  Sender: FDA-Public Use
  Company Number: AUR-APL-2012-02911

PATIENT
  Age: 49 Year
  Sex: Male
  Weight: 62.7 kg

DRUGS (1)
  1. LEVETIRACETAM [Suspect]
     Indication: PRODUCT USED FOR UNKNOWN INDICATION
     Dosage: OVER 22 DOSAGE FORMS (358 MG/KG), ORAL
     Route: 048

REACTIONS (8)
  - CARBON DIOXIDE DECREASED [None]
  - BLOOD UREA DECREASED [None]
  - ANXIETY [None]
  - DRUG SCREEN POSITIVE [None]
  - ALCOHOL USE [None]
  - WITHDRAWAL SYNDROME [None]
  - SUICIDE ATTEMPT [None]
  - INTENTIONAL OVERDOSE [None]
